FAERS Safety Report 16645632 (Version 2)
Quarter: 2019Q3

REPORT INFORMATION
  Report Type: Spontaneous
  Country: US (occurrence: US)
  Receive Date: 20190730
  Receipt Date: 20190903
  Transmission Date: 20191004
  Serious: No
  Sender: FDA-Public Use
  Company Number: US-AMGEN-USASP2019118594

PATIENT
  Age: 80 Year
  Sex: Female

DRUGS (3)
  1. REPATHA [Suspect]
     Active Substance: EVOLOCUMAB
     Indication: BLOOD CHOLESTEROL INCREASED
     Dosage: 140 MILLIGRAM, Q2WK
     Route: 065
     Dates: start: 2018, end: 201811
  2. B COMPLEX [VITAMIN B COMPLEX] [Concomitant]
  3. IRON [Concomitant]
     Active Substance: IRON
     Indication: ANAEMIA
     Dosage: UNK

REACTIONS (12)
  - Fatigue [Recovering/Resolving]
  - Gastric disorder [Unknown]
  - Bone pain [Unknown]
  - Pain in extremity [Recovering/Resolving]
  - Dysphonia [Not Recovered/Not Resolved]
  - Amnesia [Recovering/Resolving]
  - Myalgia [Not Recovered/Not Resolved]
  - Rash [Unknown]
  - Sleep disorder due to a general medical condition [Recovering/Resolving]
  - Constipation [Recovering/Resolving]
  - Decreased appetite [Recovering/Resolving]
  - Oral pain [Not Recovered/Not Resolved]

NARRATIVE: CASE EVENT DATE: 201809
